FAERS Safety Report 23783699 (Version 4)
Quarter: 2025Q2

REPORT INFORMATION
  Report Type: Spontaneous
  Country: JP (occurrence: JP)
  Receive Date: 20240425
  Receipt Date: 20250508
  Transmission Date: 20250716
  Serious: Yes (Hospitalization, Disabling)
  Sender: ELI LILLY AND COMPANY
  Company Number: JP-ELI_LILLY_AND_COMPANY-JP202404012675

PATIENT
  Age: 43 Year
  Sex: Female
  Weight: 57 kg

DRUGS (2)
  1. OLUMIANT [Suspect]
     Active Substance: BARICITINIB
     Indication: Alopecia totalis
     Dosage: 4 MG, DAILY
     Route: 048
     Dates: start: 20240311, end: 20240408
  2. CLOBETASOL [Concomitant]
     Active Substance: CLOBETASOL
     Indication: Alopecia totalis
     Route: 003
     Dates: start: 20231215

REACTIONS (2)
  - Cerebral infarction [Recovered/Resolved with Sequelae]
  - Platelet count increased [Recovered/Resolved]

NARRATIVE: CASE EVENT DATE: 20240407
